FAERS Safety Report 15338701 (Version 1)
Quarter: 2018Q3

REPORT INFORMATION
  Report Type: Spontaneous
  Country: US (occurrence: US)
  Receive Date: 20180823
  Receipt Date: 20180823
  Transmission Date: 20181010
  Serious: No
  Sender: FDA-Public Use
  Company Number: None

PATIENT
  Sex: Female

DRUGS (1)
  1. HYDROXYPROGESTERONE 250MG/ML PRASCO [Suspect]
     Active Substance: HYDROXYPROGESTERONE
     Indication: PRODUCT USED FOR UNKNOWN INDICATION
     Route: 030
     Dates: start: 20180727, end: 20180728

REACTIONS (4)
  - Injection site swelling [None]
  - Hypersensitivity [None]
  - Injection site erythema [None]
  - Product substitution issue [None]
